FAERS Safety Report 8237159-4 (Version None)
Quarter: 2012Q1

REPORT INFORMATION
  Report Type: 
  Country: None (occurrence: None)
  Receive Date: 20120327
  Receipt Date: 20120320
  Transmission Date: 20120608
  Serious: No
  Sender: FDA-Public Use
  Company Number: US-PFIZER INC-2012074861

PATIENT

DRUGS (2)
  1. VIAGRA [Suspect]
     Dosage: UNK
  2. LYRICA [Suspect]
     Dosage: UNK

REACTIONS (3)
  - NEUROPATHY PERIPHERAL [None]
  - PAIN [None]
  - EMOTIONAL DISORDER [None]
